FAERS Safety Report 16716092 (Version 1)
Quarter: 2019Q3

REPORT INFORMATION
  Report Type: Spontaneous
  Country: US (occurrence: US)
  Receive Date: 20190819
  Receipt Date: 20190819
  Transmission Date: 20191005
  Serious: No
  Sender: FDA-Public Use
  Company Number: US-009507513-1908USA006845

PATIENT
  Age: 46 Year
  Sex: Male

DRUGS (3)
  1. LISINOPRIL. [Concomitant]
     Active Substance: LISINOPRIL
  2. CLONAZEPAM. [Concomitant]
     Active Substance: CLONAZEPAM
  3. PREGNYL [Suspect]
     Active Substance: CHORIOGONADOTROPIN ALFA
     Indication: HYPOGONADISM MALE
     Dosage: 1000, UNITS, TIW,  MDV60
     Route: 030
     Dates: start: 20190815

REACTIONS (2)
  - Intentional product misuse [Unknown]
  - Circumstance or information capable of leading to medication error [Unknown]

NARRATIVE: CASE EVENT DATE: 20190816
